FAERS Safety Report 11068715 (Version 2)
Quarter: 2015Q2

REPORT INFORMATION
  Report Type: Spontaneous
  Country: GB (occurrence: GB)
  Receive Date: 20150427
  Receipt Date: 20150527
  Transmission Date: 20150821
  Serious: Yes (Hospitalization)
  Sender: FDA-Public Use
  Company Number: GB-TEVA-556793ACC

PATIENT
  Age: 67 Year
  Sex: Male

DRUGS (13)
  1. LUCENTIS [Suspect]
     Active Substance: RANIBIZUMAB
     Dosage: CODE NOT BROKEN
     Route: 031
     Dates: start: 20140807
  2. LUCENTIS [Suspect]
     Active Substance: RANIBIZUMAB
     Dosage: CODE NOT BROKEN
     Route: 031
     Dates: start: 20140409
  3. PLACEBO [Suspect]
     Active Substance: UNSPECIFIED INGREDIENT
     Dosage: CODE NOT BROKEN
     Route: 031
     Dates: start: 20140409
  4. LUCENTIS [Suspect]
     Active Substance: RANIBIZUMAB
     Dosage: CODE NOT BROKEN
     Route: 031
     Dates: start: 20141212
  5. LUCENTIS [Suspect]
     Active Substance: RANIBIZUMAB
     Dosage: CODE NOT BROKEN
     Route: 031
     Dates: start: 20150106
  6. BISOPROLOL [Suspect]
     Active Substance: BISOPROLOL
     Indication: PRODUCT USED FOR UNKNOWN INDICATION
     Dosage: 5 MILLIGRAM DAILY; 5 MG, QD; DAILY DOSE 5 MILLIGRAM
     Route: 048
  7. LUCENTIS [Suspect]
     Active Substance: RANIBIZUMAB
     Dosage: CODE NOT BROKEN
     Route: 031
     Dates: start: 20150203, end: 20150203
  8. PLACEBO [Suspect]
     Active Substance: UNSPECIFIED INGREDIENT
     Indication: VISUAL IMPAIRMENT
     Dosage: CODE NOT BROKEN
     Route: 031
     Dates: start: 20150106
  9. PLACEBO [Suspect]
     Active Substance: UNSPECIFIED INGREDIENT
     Dosage: CODE NOT BROKEN
     Route: 031
     Dates: start: 20140617
  10. PLACEBO [Suspect]
     Active Substance: UNSPECIFIED INGREDIENT
     Dosage: CODE NOT BROKEN
     Route: 031
     Dates: start: 20150203, end: 20150203
  11. PLACEBO [Suspect]
     Active Substance: UNSPECIFIED INGREDIENT
     Dosage: CODE NOT BROKEN
     Route: 031
     Dates: start: 20141212
  12. LUCENTIS [Suspect]
     Active Substance: RANIBIZUMAB
     Indication: VISUAL IMPAIRMENT
     Dosage: CODE NOT BROKEN
     Route: 031
     Dates: start: 20140617
  13. PLACEBO [Suspect]
     Active Substance: UNSPECIFIED INGREDIENT
     Dosage: CODE NOT BROKEN
     Route: 031
     Dates: start: 20140807

REACTIONS (3)
  - Chronic obstructive pulmonary disease [Recovering/Resolving]
  - Pneumothorax [Recovered/Resolved]
  - Pneumonia [Recovered/Resolved]

NARRATIVE: CASE EVENT DATE: 20140502
